FAERS Safety Report 9369688 (Version 7)
Quarter: 2014Q2

REPORT INFORMATION
  Report Type: Report from Study
  Country: CA (occurrence: CA)
  Receive Date: 20130626
  Receipt Date: 20140522
  Transmission Date: 20141212
  Serious: Yes (Hospitalization)
  Sender: FDA-Public Use
  Company Number: CA-UCBSA-089462

PATIENT
  Age: 47 Year
  Sex: Female
  Weight: 86.5 kg

DRUGS (12)
  1. CIMZIA [Suspect]
     Indication: RHEUMATOID ARTHRITIS
     Dosage: DOSE: 200 MG; NO OF DOSES RECEIVED 9; NO OF DOSES RECEIVED UNKNOWN ON 15/JUL/2013
     Route: 058
     Dates: start: 20110819, end: 20130709
  2. CIMZIA [Suspect]
     Indication: RHEUMATOID ARTHRITIS
     Route: 058
     Dates: start: 2013, end: 20130812
  3. LEUCOVORIN CALCIUM [Concomitant]
     Route: 048
  4. TYLENOL NO 3 [Concomitant]
     Dosage: 1 TABLET BID  AS NEEDED FOR 100 DAYS
  5. CELEXA [Concomitant]
     Dosage: DOSE : 20 MG 2 TABLETS  FOR 100 DAYS
  6. DEXILANT DR [Concomitant]
     Dosage: DOSE: 60 MG CAPSULE 1 TABLET QD AS NEEDED
  7. FLEXERIL [Concomitant]
     Dosage: 1 TAB QD FOR 100 D
  8. METHOTREXATE [Concomitant]
     Dosage: DOSE: 2.5 MG 6 TABLETS 1XWEEK
     Dates: start: 20130430
  9. MIRAPEX [Concomitant]
     Dosage: DOSE: 2 TABLETS AT EVERY BED TIME FOR 100 D
  10. LYRICA [Concomitant]
     Dosage: DOSE: 150 MG CAPSULE 1 TABLET TID FOR 100 D
  11. PERCOCET [Concomitant]
     Dosage: DOSE: 325 MG 1 TABLET ONCE DAILY, PRN FOR 1
  12. WELLBUTRIN XL [Concomitant]
     Dosage: DOSE: 300 MG 1 TABLET ONCE DAILY FOR 100 D

REACTIONS (3)
  - Nephrolithiasis [Recovered/Resolved]
  - Sepsis [Recovered/Resolved]
  - Escherichia urinary tract infection [Recovered/Resolved]
